FAERS Safety Report 25301821 (Version 1)
Quarter: 2025Q2

REPORT INFORMATION
  Report Type: Spontaneous
  Country: US (occurrence: US)
  Receive Date: 20250512
  Receipt Date: 20250512
  Transmission Date: 20250716
  Serious: No
  Sender: ABBVIE
  Company Number: US-ABBVIE-6278526

PATIENT
  Age: 25 Year
  Sex: Female
  Weight: 72.574 kg

DRUGS (11)
  1. HUMIRA [Suspect]
     Active Substance: ADALIMUMAB
     Indication: Crohn^s disease
     Dosage: FORM STRENGTH: 40? FORM STRENGTH UNITS: MILLIGRAM
     Route: 058
     Dates: start: 20250228
  2. OMEPRAZOLE [Concomitant]
     Active Substance: OMEPRAZOLE
     Indication: Crohn^s disease
  3. BUPROPION [Concomitant]
     Active Substance: BUPROPION
     Indication: Depression
  4. VITAMIN D [Concomitant]
     Active Substance: VITAMIN D NOS
     Indication: Crohn^s disease
  5. MAGNESIUM [Concomitant]
     Active Substance: MAGNESIUM
     Indication: Crohn^s disease
  6. VITAMINS [Concomitant]
     Active Substance: VITAMINS
     Indication: Crohn^s disease
  7. CETIRIZINE HYDROCHLORIDE [Concomitant]
     Active Substance: CETIRIZINE HYDROCHLORIDE
     Indication: Multiple allergies
  8. CALCIUM [Concomitant]
     Active Substance: CALCIUM
     Indication: Crohn^s disease
  9. POTASSIUM [Concomitant]
     Active Substance: POTASSIUM
     Indication: Crohn^s disease
  10. SPIRONOLACTONE [Concomitant]
     Active Substance: SPIRONOLACTONE
     Indication: Crohn^s disease
  11. VITAMIN B12 [Concomitant]
     Active Substance: CYANOCOBALAMIN
     Indication: Product used for unknown indication

REACTIONS (5)
  - Full blood count decreased [Recovering/Resolving]
  - Vitamin B12 decreased [Recovering/Resolving]
  - Injection site discharge [Not Recovered/Not Resolved]
  - Drug ineffective [Not Recovered/Not Resolved]
  - Blood iron decreased [Recovering/Resolving]

NARRATIVE: CASE EVENT DATE: 20250101
